FAERS Safety Report 20905067 (Version 1)
Quarter: 2022Q2

REPORT INFORMATION
  Report Type: Spontaneous
  Country: US (occurrence: None)
  Receive Date: 20220601
  Receipt Date: 20220601
  Transmission Date: 20220721
  Serious: No
  Sender: FDA-Public Use
  Company Number: None

PATIENT
  Age: 65 Year
  Sex: Female
  Weight: 65.25 kg

DRUGS (10)
  1. PAXLOVID [Suspect]
     Active Substance: NIRMATRELVIR\RITONAVIR
     Indication: COVID-19
     Dosage: OTHER QUANTITY : 3 TABLET(S);?FREQUENCY : TWICE A DAY;?
     Route: 048
     Dates: start: 20220511, end: 20220516
  2. LEXAPRO [Concomitant]
     Active Substance: ESCITALOPRAM OXALATE
  3. VITAMIN C [Concomitant]
     Active Substance: ASCORBIC ACID
  4. D [Concomitant]
  5. ZINC [Concomitant]
     Active Substance: ZINC
  6. CALCIUM [Concomitant]
     Active Substance: CALCIUM
  7. pro-biotic [Concomitant]
  8. Digestive enzymes [Concomitant]
  9. MELATONIN [Concomitant]
     Active Substance: MELATONIN
  10. CBD for sleep [Concomitant]

REACTIONS (3)
  - Pyrexia [None]
  - Fatigue [None]
  - Symptom recurrence [None]

NARRATIVE: CASE EVENT DATE: 20220519
